FAERS Safety Report 8218290-6 (Version None)
Quarter: 2012Q1

REPORT INFORMATION
  Report Type: 
  Country: None (occurrence: None)
  Receive Date: 20120319
  Receipt Date: 20111113
  Transmission Date: 20120608
  Serious: Yes (Other)
  Sender: FDA-Public Use
  Company Number: GR-GLAXOSMITHKLINE-B0764014A

PATIENT
  Age: 42 Year
  Sex: Female
  Weight: 63 kg

DRUGS (1)
  1. ALLI [Suspect]
     Indication: WEIGHT DECREASED
     Dosage: 60MG PER DAY
     Route: 048
     Dates: start: 20100101

REACTIONS (3)
  - HEPATIC ENZYME INCREASED [None]
  - OFF LABEL USE [None]
  - EXPIRED DRUG ADMINISTERED [None]
